FAERS Safety Report 9419431 (Version 1)
Quarter: 2013Q3

REPORT INFORMATION
  Report Type: Spontaneous
  Country: CH (occurrence: CH)
  Receive Date: 20130725
  Receipt Date: 20130725
  Transmission Date: 20140515
  Serious: Yes (Other)
  Sender: FDA-Public Use
  Company Number: CH-PFIZER INC-2013215541

PATIENT
  Sex: Female

DRUGS (2)
  1. XANAX RETARD [Suspect]
     Dosage: 0.5 MG, UNK
     Route: 048
  2. SEQUASE [Interacting]
     Dosage: 25 MG, UNK
     Route: 048
     Dates: start: 20130528

REACTIONS (4)
  - Drug interaction [Unknown]
  - Respiratory distress [Unknown]
  - Dizziness [Unknown]
  - Nausea [Unknown]
